FAERS Safety Report 5345283-9 (Version None)
Quarter: 2007Q2

REPORT INFORMATION
  Report Type: 
  Country: None (occurrence: None)
  Receive Date: 20070531
  Receipt Date: 20070523
  Transmission Date: 20071010
  Serious: Yes (Other)
  Sender: FDA-Public Use
  Company Number: 13790647

PATIENT
  Sex: Female
  Weight: 59.86 kg

DRUGS (4)
  1. EMSAM [Suspect]
     Indication: DEPRESSION
     Dosage: 6 MILLIGRAM, 24  HOUR TD
     Route: 062
     Dates: start: 20070201, end: 20070509
  2. RELPAX [Concomitant]
  3. ADVIL [Concomitant]
  4. CLEOCIN HYDROCHLORIDE [Concomitant]

REACTIONS (13)
  - ABDOMINAL PAIN LOWER [None]
  - BEDRIDDEN [None]
  - CYSTITIS [None]
  - DEFAECATION URGENCY [None]
  - FAECES PALE [None]
  - FREQUENT BOWEL MOVEMENTS [None]
  - HEPATITIS [None]
  - HEPATOCELLULAR DAMAGE [None]
  - MALAISE [None]
  - MIGRAINE [None]
  - SENSATION OF PRESSURE [None]
  - TOOTH DISORDER [None]
  - VOMITING [None]
